FAERS Safety Report 20150795 (Version 1)
Quarter: 2021Q4

REPORT INFORMATION
  Report Type: Spontaneous
  Country: US (occurrence: US)
  Receive Date: 20211206
  Receipt Date: 20211206
  Transmission Date: 20220303
  Serious: Yes (Hospitalization)
  Sender: FDA-Public Use
  Company Number: US-NOVARTISPH-NVSC2021US273799

PATIENT
  Sex: Female

DRUGS (4)
  1. BISOPROLOL [Suspect]
     Active Substance: BISOPROLOL
     Indication: Product used for unknown indication
     Dosage: UNK
     Route: 065
     Dates: start: 2015, end: 2019
  2. ENALAPRIL [Suspect]
     Active Substance: ENALAPRIL
     Indication: Product used for unknown indication
     Dosage: UNK
     Route: 065
     Dates: start: 2015, end: 2015
  3. LOSARTAN [Suspect]
     Active Substance: LOSARTAN
     Indication: Product used for unknown indication
     Dosage: UNK
     Route: 065
     Dates: start: 2015, end: 20211117
  4. COREG [Concomitant]
     Active Substance: CARVEDILOL
     Indication: Product used for unknown indication
     Dosage: UNK
     Route: 065

REACTIONS (11)
  - Dyspnoea [Recovering/Resolving]
  - Gait disturbance [Recovered/Resolved]
  - Pulmonary oedema [Recovering/Resolving]
  - Cough [Recovered/Resolved]
  - Thyroid disorder [Unknown]
  - Stress [Recovering/Resolving]
  - Hypotension [Recovered/Resolved]
  - Peripheral coldness [Not Recovered/Not Resolved]
  - Poor quality sleep [Recovered/Resolved]
  - Nightmare [Recovered/Resolved]
  - Therapy non-responder [Recovering/Resolving]

NARRATIVE: CASE EVENT DATE: 20150101
